FAERS Safety Report 24287080 (Version 2)
Quarter: 2024Q3

REPORT INFORMATION
  Report Type: Spontaneous
  Country: US (occurrence: US)
  Receive Date: 20240905
  Receipt Date: 20240916
  Transmission Date: 20241016
  Serious: Yes (Life-Threatening, Hospitalization, Other)
  Sender: NOVARTIS
  Company Number: US-002147023-NVSC2024US178333

PATIENT
  Age: 71 Year
  Sex: Female
  Weight: 75.6 kg

DRUGS (3)
  1. MAYZENT [Suspect]
     Active Substance: SIPONIMOD
     Indication: Multiple sclerosis
     Dosage: UNK(0.25 MG ONCE  DAILY FOR 2 DAYS,  THEN 0.5 MG DAILY  FOR 1 DAY, THEN  0.75 MG DAILY FOR  1 DAY, T
     Route: 048
     Dates: start: 20240823, end: 20240901
  2. MAYZENT [Suspect]
     Active Substance: SIPONIMOD
     Dosage: UNK(0.25 MG ONCE  DAILY FOR 2 DAYS,  THEN 0.5 MG DAILY  FOR 1 DAY, THEN  0.75 MG DAILY FOR  1 DAY, T
     Route: 048
     Dates: start: 20240823, end: 20240901
  3. DALFAMPRIDINE [Concomitant]
     Active Substance: DALFAMPRIDINE
     Indication: Multiple sclerosis
     Dosage: 10 MG, BID
     Route: 048

REACTIONS (2)
  - Seizure [Recovered/Resolved with Sequelae]
  - Encephalopathy [Recovered/Resolved]

NARRATIVE: CASE EVENT DATE: 20240831
